FAERS Safety Report 14755961 (Version 3)
Quarter: 2018Q3

REPORT INFORMATION
  Report Type: Spontaneous
  Country: US (occurrence: US)
  Receive Date: 20180413
  Receipt Date: 20180723
  Transmission Date: 20181010
  Serious: No
  Sender: FDA-Public Use
  Company Number: US-PFIZER INC-2018151421

PATIENT
  Age: 83 Year
  Sex: Female

DRUGS (1)
  1. INDOMETHACIN /00003801/ [Suspect]
     Active Substance: INDOMETHACIN
     Indication: OSTEOARTHRITIS
     Dosage: UNK
     Route: 048
     Dates: end: 201305

REACTIONS (4)
  - Pharyngeal oedema [Recovered/Resolved]
  - Dyspnoea [Recovered/Resolved]
  - Product use issue [Unknown]
  - Drug hypersensitivity [Unknown]

NARRATIVE: CASE EVENT DATE: 201305
